FAERS Safety Report 9136818 (Version 1)
Quarter: 2013Q1

REPORT INFORMATION
  Report Type: Spontaneous
  Country: US (occurrence: US)
  Receive Date: 20130304
  Receipt Date: 20130304
  Transmission Date: 20140127
  Serious: No
  Sender: FDA-Public Use
  Company Number: US-ABBOTT-12P-163-0939429-00

PATIENT
  Age: 67 Year
  Sex: Female
  Weight: 63.56 kg

DRUGS (3)
  1. ANDROGEL 1% [Suspect]
     Indication: ACCIDENTAL EXPOSURE TO PRODUCT
     Dosage: 3 PUMPS A DAY
     Dates: start: 201202
  2. BIOTIN [Concomitant]
     Indication: PRODUCT USED FOR UNKNOWN INDICATION
     Dates: start: 201204
  3. MULTIVITAMIN [Concomitant]
     Indication: PRODUCT USED FOR UNKNOWN INDICATION
     Dates: start: 201204

REACTIONS (3)
  - Accidental exposure to product [Unknown]
  - Alopecia [Not Recovered/Not Resolved]
  - Stress [Unknown]
